FAERS Safety Report 5557773-4 (Version None)
Quarter: 2007Q4

REPORT INFORMATION
  Report Type: 
  Country: None (occurrence: None)
  Receive Date: 20071130
  Receipt Date: 20070827
  Transmission Date: 20080405
  Serious: No
  Sender: FDA-Public Use
  Company Number: US200708006157

PATIENT
  Age: 43 Year
  Sex: Female
  Weight: 112.9 kg

DRUGS (7)
  1. BYETTA [Suspect]
     Indication: TYPE 2 DIABETES MELLITUS
     Dosage: 5 UG, 2/D, SUBCUTANEOUS
     Route: 058
     Dates: start: 20070731
  2. GLUCOPHAGE /USA/ (METFORMIN HYDROCHLORIDE) [Concomitant]
  3. ADVAIR DISKUS 100/50 [Concomitant]
  4. ALLEGRA [Concomitant]
  5. FLONASE [Concomitant]
  6. SINGULAIR [Concomitant]
  7. ZESTRIL [Concomitant]

REACTIONS (5)
  - ACCIDENTAL NEEDLE STICK [None]
  - DECREASED APPETITE [None]
  - INJECTION SITE PAIN [None]
  - INJECTION SITE URTICARIA [None]
  - WEIGHT DECREASED [None]
